FAERS Safety Report 7792107-6 (Version None)
Quarter: 2011Q3

REPORT INFORMATION
  Report Type: 
  Country: None (occurrence: None)
  Receive Date: 20110929
  Receipt Date: 20110920
  Transmission Date: 20111222
  Serious: Yes (Hospitalization)
  Sender: FDA-Public Use
  Company Number: 2011MA013929

PATIENT
  Age: 57 Year
  Sex: Male

DRUGS (7)
  1. OXYCODONE HCL [Suspect]
     Indication: PAIN
     Dosage: 15 MG;Q4H;PO
     Route: 048
     Dates: start: 20080616
  2. FUROSEMIDE [Concomitant]
  3. PAROXETINE HCL [Concomitant]
  4. LEVOTHYROXINE SODIUM [Concomitant]
  5. LACTULOSE [Concomitant]
  6. ALLOPURINOL [Concomitant]
  7. SPIRONOLACTONE [Concomitant]

REACTIONS (7)
  - CONFUSIONAL STATE [None]
  - THROMBOCYTOPENIA [None]
  - HEAD INJURY [None]
  - LACERATION [None]
  - FALL [None]
  - SCRATCH [None]
  - CONTUSION [None]
